FAERS Safety Report 24789062 (Version 1)
Quarter: 2024Q4

REPORT INFORMATION
  Report Type: Spontaneous
  Country: US (occurrence: US)
  Receive Date: 20241230
  Receipt Date: 20241230
  Transmission Date: 20250114
  Serious: Yes (Other)
  Sender: PFIZER
  Company Number: US-PFIZER INC-202400318195

PATIENT
  Age: 43 Year
  Sex: Male

DRUGS (1)
  1. VELSIPITY [Suspect]
     Active Substance: ETRASIMOD ARGININE
     Dosage: 2 MG

REACTIONS (9)
  - Arrhythmia [Unknown]
  - Ankylosing spondylitis [Unknown]
  - Pain [Unknown]
  - Ventricular extrasystoles [Unknown]
  - Arthralgia [Unknown]
  - Pyrexia [Unknown]
  - Fatigue [Unknown]
  - Respiratory tract congestion [Unknown]
  - Insomnia [Unknown]
